FAERS Safety Report 4645117-1 (Version None)
Quarter: 2005Q2

REPORT INFORMATION
  Report Type: 
  Country: None (occurrence: None)
  Receive Date: 20050426
  Receipt Date: 20050418
  Transmission Date: 20051028
  Serious: Yes (Hospitalization)
  Sender: FDA-Public Use
  Company Number: PHRM2005FR01346

PATIENT
  Age: 35 Year
  Sex: Male
  Weight: 70 kg

DRUGS (5)
  1. GYNERGENE-CAFEINE [Suspect]
     Dosage: 1 TAB/DAY
     Route: 048
  2. PROPRANOLOL HYDROCHLORIDE [Concomitant]
     Route: 048
  3. PROPOFAN [Concomitant]
     Dosage: 3 TAB/DAY
     Route: 048
  4. DAIVONEX [Concomitant]
     Route: 061
  5. CELEBREX [Concomitant]
     Route: 048

REACTIONS (5)
  - FACE OEDEMA [None]
  - FIXED ERUPTION [None]
  - OEDEMA PERIPHERAL [None]
  - RASH PSORIAFORM [None]
  - TOXIC SKIN ERUPTION [None]
